FAERS Safety Report 23850696 (Version 4)
Quarter: 2024Q3

REPORT INFORMATION
  Report Type: Spontaneous
  Country: US (occurrence: US)
  Receive Date: 20240513
  Receipt Date: 20240926
  Transmission Date: 20241016
  Serious: Yes (Other)
  Sender: MALLINCKRODT
  Company Number: US-MALLINCKRODT-MNK202401695

PATIENT
  Age: 76 Year
  Sex: Male
  Weight: 160 kg

DRUGS (4)
  1. CORTICOTROPIN [Suspect]
     Active Substance: CORTICOTROPIN
     Indication: Rheumatoid arthritis
     Route: 058
     Dates: start: 201902
  2. CORTICOTROPIN [Suspect]
     Active Substance: CORTICOTROPIN
     Indication: Rheumatoid arthritis
     Route: 058
     Dates: start: 20190102
  3. ORENCIA [Suspect]
     Active Substance: ABATACEPT
     Indication: Product used for unknown indication
     Dosage: UNKNOWN
  4. ELIQUIS [Concomitant]
     Active Substance: APIXABAN
     Dosage: UNKNOWN

REACTIONS (10)
  - Diabetes mellitus [Not Recovered/Not Resolved]
  - Skin discolouration [Not Recovered/Not Resolved]
  - Contusion [Not Recovered/Not Resolved]
  - Fall [Unknown]
  - Back disorder [Unknown]
  - Joint injury [Unknown]
  - Hypotension [Unknown]
  - Skin atrophy [Not Recovered/Not Resolved]
  - Joint swelling [Unknown]
  - Blood pressure diastolic increased [Not Recovered/Not Resolved]
